FAERS Safety Report 8132924-6 (Version None)
Quarter: 2012Q1

REPORT INFORMATION
  Report Type: 
  Country: None (occurrence: None)
  Receive Date: 20120213
  Receipt Date: 20120209
  Transmission Date: 20120608
  Serious: Yes (Hospitalization, Other)
  Sender: FDA-Public Use
  Company Number: US-JNJFOC-20100304439

PATIENT
  Sex: Female

DRUGS (1)
  1. LEVAQUIN [Suspect]
     Indication: CELLULITIS
     Route: 048

REACTIONS (4)
  - TENDON RUPTURE [None]
  - ANXIETY [None]
  - STRESS [None]
  - TENOSYNOVITIS [None]
